FAERS Safety Report 12634785 (Version 1)
Quarter: 2016Q3

REPORT INFORMATION
  Report Type: Spontaneous
  Country: None (occurrence: None)
  Receive Date: 20160808
  Receipt Date: 20160808
  Transmission Date: 20161109
  Serious: Yes (Other)
  Sender: FDA-Public Use
  Company Number: None

PATIENT
  Age: 14 Month
  Sex: Female
  Weight: 10.43 kg

DRUGS (3)
  1. KEFLEX [Concomitant]
     Active Substance: CEPHALEXIN
  2. PREDNISONE. [Concomitant]
     Active Substance: PREDNISONE
  3. NEUTROGENA PURE AND FREE [Suspect]
     Active Substance: TITANIUM DIOXIDE\ZINC OXIDE
     Indication: PROPHYLAXIS AGAINST SOLAR RADIATION
     Dosage: NEUTROGENA PURE AND FREE?1 APPLICATION AS NEEDED?APPLIED TO A SURFACE, USUALLY THE SKIN

REACTIONS (6)
  - Application site inflammation [None]
  - Application site erythema [None]
  - Chemical injury [None]
  - Application site vesicles [None]
  - Application site pain [None]
  - Application site burn [None]

NARRATIVE: CASE EVENT DATE: 20160731
